FAERS Safety Report 6666256-X (Version None)
Quarter: 2010Q2

REPORT INFORMATION
  Report Type: 
  Country: None (occurrence: None)
  Receive Date: 20100402
  Receipt Date: 20100326
  Transmission Date: 20101027
  Serious: Yes (Other)
  Sender: FDA-Public Use
  Company Number: US-RB-004962-10

PATIENT
  Age: 46 Year
  Sex: Male

DRUGS (2)
  1. SUBOXONE [Suspect]
     Route: 060
     Dates: start: 20090301
  2. PAXIL [Concomitant]
     Indication: DEPRESSION
     Route: 065
     Dates: start: 20090901

REACTIONS (3)
  - DEPRESSION [None]
  - HEPATITIS C [None]
  - SUICIDAL IDEATION [None]
